FAERS Safety Report 23249185 (Version 1)
Quarter: 2023Q4

REPORT INFORMATION
  Report Type: Spontaneous
  Country: GB (occurrence: GB)
  Receive Date: 20231201
  Receipt Date: 20231201
  Transmission Date: 20240110
  Serious: Yes (Other)
  Sender: FDA-Public Use
  Company Number: None

PATIENT

DRUGS (7)
  1. PREDNISOLONE [Suspect]
     Active Substance: PREDNISOLONE
     Dosage: UNK (SOLUBLE TABLET)
     Dates: start: 20231112
  2. ASPIRIN [Concomitant]
     Active Substance: ASPIRIN
     Dosage: 1 DOSAGE FORM, QD
     Dates: start: 20230530
  3. MESALAMINE [Concomitant]
     Active Substance: MESALAMINE
     Dosage: 1 DOSAGE FORM (INSERT ONE METERED APPLICATION INTO THE RECTUM)
     Route: 054
     Dates: start: 20230530
  4. OMEPRAZOLE [Concomitant]
     Active Substance: OMEPRAZOLE
     Dosage: 1 DOSAGE FORM, QD
     Dates: start: 20230530
  5. SALOFALK [Concomitant]
     Dosage: 1 DOSAGE FORM, QD (ONE SACHET AS PER IBD SPEC)
     Dates: start: 20230530
  6. VEDOLIZUMAB [Concomitant]
     Active Substance: VEDOLIZUMAB
     Dosage: UNK (DO NOT ISSUE HOSPITAL PRESCRIPTION ONLY)
     Dates: start: 20210909
  7. WARFARIN SODIUM [Concomitant]
     Active Substance: WARFARIN SODIUM
     Dosage: UNK (TAKE AS PRESCRIBED IN ANTICOAGULANT TREATMENT BOOK)
     Dates: start: 20230530

REACTIONS (2)
  - Suicidal behaviour [Recovered/Resolved]
  - Suicidal ideation [Unknown]
